FAERS Safety Report 6090655-0 (Version None)
Quarter: 2009Q1

REPORT INFORMATION
  Report Type: 
  Country: None (occurrence: None)
  Receive Date: 20090223
  Receipt Date: 20090119
  Transmission Date: 20090719
  Serious: Yes (Hospitalization)
  Sender: FDA-Public Use
  Company Number: AE 2009-008

PATIENT
  Age: 28 Year
  Sex: Female

DRUGS (1)
  1. URELLE TABLETS AZUR PHARMA [Suspect]
     Indication: CYSTITIS INTERSTITIAL
     Dosage: 1 TABLET BID PO
     Route: 048

REACTIONS (1)
  - CHEST PAIN [None]
